APPROVED DRUG PRODUCT: LEVOCETIRIZINE DIHYDROCHLORIDE
Active Ingredient: LEVOCETIRIZINE DIHYDROCHLORIDE
Strength: 5MG
Dosage Form/Route: TABLET;ORAL
Application: A203646 | Product #001 | TE Code: AB
Applicant: SCIEGEN PHARMACEUTICALS INC
Approved: Sep 9, 2014 | RLD: No | RS: No | Type: RX